FAERS Safety Report 8567347 (Version 2)
Quarter: 2012Q4

REPORT INFORMATION
  Report Type: 
  Country: US (occurrence: US)
  Receive Date: 20120517
  Receipt Date: 20120919
  Transmission Date: 20130627
  Serious: No
  Sender: FDA-Public Use
  Company Number: US-PFIZER INC-2012118956

PATIENT
  Age: 42 Year
  Sex: Male

DRUGS (2)
  1. SUTENT [Suspect]
     Indication: CONNECTIVE TISSUE NEOPLASM
     Dosage: 12.5 mg, UNK
     Dates: start: 20110214, end: 20120402
  2. SUTENT [Suspect]
     Dosage: 37.5 mg, UNK
     Dates: start: 20110214, end: 20120807

REACTIONS (3)
  - Disease progression [Unknown]
  - Connective tissue neoplasm [Unknown]
  - Off label use [Unknown]
